FAERS Safety Report 24985847 (Version 2)
Quarter: 2025Q1

REPORT INFORMATION
  Report Type: Spontaneous
  Country: US (occurrence: US)
  Receive Date: 20250219
  Receipt Date: 20250228
  Transmission Date: 20250408
  Serious: Yes (Other)
  Sender: SANOFI AVENTIS
  Company Number: US-SA-2025SA048604

PATIENT
  Age: 77 Year
  Sex: Female

DRUGS (27)
  1. DUPIXENT [Suspect]
     Active Substance: DUPILUMAB
     Indication: Asthma
     Dosage: 300 MG, QOW
     Route: 058
     Dates: start: 20220921
  2. DUPIXENT [Suspect]
     Active Substance: DUPILUMAB
     Dosage: 300 MG, QOW
     Dates: start: 20250129
  3. ASPIRIN [Concomitant]
     Active Substance: ASPIRIN
  4. BACTRIM DS [Concomitant]
     Active Substance: SULFAMETHOXAZOLE\TRIMETHOPRIM
  5. CLARITHROMYCIN [Concomitant]
     Active Substance: CLARITHROMYCIN
  6. FAMOTIDINE [Concomitant]
     Active Substance: FAMOTIDINE
  7. FASENRA [Concomitant]
     Active Substance: BENRALIZUMAB
  8. FLOVENT [Concomitant]
     Active Substance: FLUTICASONE PROPIONATE
  9. IBUPROFEN [Concomitant]
     Active Substance: IBUPROFEN
  10. IRON [Concomitant]
     Active Substance: IRON
  11. MELATONIN [Concomitant]
     Active Substance: MELATONIN
  12. MOMETASONE [Concomitant]
     Active Substance: MOMETASONE
  13. MONTELUKAST [Concomitant]
     Active Substance: MONTELUKAST
  14. PREDNISONE [Concomitant]
     Active Substance: PREDNISONE
  15. MINERALS\VITAMINS [Concomitant]
     Active Substance: MINERALS\VITAMINS
  16. SYNTHROID [Concomitant]
     Active Substance: LEVOTHYROXINE SODIUM
  17. VITAMIN D3 [Concomitant]
     Active Substance: CHOLECALCIFEROL
  18. ZYFLO [Concomitant]
     Active Substance: ZILEUTON
  19. GLATIRAMER [Concomitant]
     Active Substance: GLATIRAMER
  20. ALLEGRA ALLERGY [Concomitant]
     Active Substance: FEXOFENADINE HYDROCHLORIDE
  21. FASENRA [Suspect]
     Active Substance: BENRALIZUMAB
  22. VITAMIN B12 [Concomitant]
     Active Substance: CYANOCOBALAMIN
  23. VITAMIN D3 [Concomitant]
     Active Substance: CHOLECALCIFEROL
  24. PROBIOTICS NOS [Concomitant]
     Active Substance: PROBIOTICS NOS
  25. MINERALS\VITAMINS [Concomitant]
     Active Substance: MINERALS\VITAMINS
  26. ASPIRIN [Concomitant]
     Active Substance: ASPIRIN
  27. Allergy Relief [Concomitant]

REACTIONS (10)
  - Multiple sclerosis [Not Recovered/Not Resolved]
  - Neuropathy peripheral [Not Recovered/Not Resolved]
  - Depressed mood [Not Recovered/Not Resolved]
  - Feeling of despair [Not Recovered/Not Resolved]
  - Pain [Not Recovered/Not Resolved]
  - Sensory disturbance [Not Recovered/Not Resolved]
  - Skin papilloma [Not Recovered/Not Resolved]
  - Dizziness [Recovering/Resolving]
  - Vision blurred [Not Recovered/Not Resolved]
  - Asthma [Not Recovered/Not Resolved]

NARRATIVE: CASE EVENT DATE: 20250101
